FAERS Safety Report 17241658 (Version 2)
Quarter: 2020Q1

REPORT INFORMATION
  Report Type: Spontaneous
  Country: US (occurrence: US)
  Receive Date: 20200107
  Receipt Date: 20200121
  Transmission Date: 20200409
  Serious: No
  Sender: FDA-Public Use
  Company Number: US-MYLANLABS-2019M1132907

PATIENT
  Age: 56 Year
  Sex: Female
  Weight: 73 kg

DRUGS (2)
  1. ESTRADIOL TRANSDERMAL SYSTEM [Suspect]
     Active Substance: ESTRADIOL
     Dosage: 1 DOSAGE FORM, BIWEEKLY
     Route: 062
     Dates: start: 20191114, end: 20191115
  2. ESTRADIOL TRANSDERMAL SYSTEM [Suspect]
     Active Substance: ESTRADIOL
     Indication: MENOPAUSE
     Dosage: UNK
     Route: 062

REACTIONS (2)
  - Abdominal distension [Recovered/Resolved]
  - Muscle spasms [Recovered/Resolved]
